FAERS Safety Report 20069157 (Version 1)
Quarter: 2021Q4

REPORT INFORMATION
  Report Type: Report from Study
  Country: HK (occurrence: HK)
  Receive Date: 20211115
  Receipt Date: 20211115
  Transmission Date: 20220304
  Serious: Yes (Hospitalization)
  Sender: FDA-Public Use
  Company Number: HK-PFIZER INC-202101506452

PATIENT
  Age: 58 Year
  Sex: Female
  Weight: 47 kg

DRUGS (14)
  1. AVELUMAB [Suspect]
     Active Substance: AVELUMAB
     Indication: Cervix carcinoma
     Route: 042
     Dates: start: 20210727
  2. AXITINIB [Suspect]
     Active Substance: AXITINIB
     Indication: Cervix carcinoma
     Route: 042
     Dates: start: 20210727, end: 20210901
  3. AXITINIB [Suspect]
     Active Substance: AXITINIB
     Route: 042
     Dates: start: 20210923, end: 20211026
  4. CHLORPHENIRAMINE MALEATE [Concomitant]
     Active Substance: CHLORPHENIRAMINE MALEATE
     Indication: Premedication
     Route: 042
     Dates: start: 20210827
  5. CHLORPHENIRAMINE MALEATE [Concomitant]
     Active Substance: CHLORPHENIRAMINE MALEATE
     Indication: Infusion related reaction
     Route: 048
     Dates: start: 20210727, end: 20211019
  6. CETIRIZINE [Concomitant]
     Active Substance: CETIRIZINE HYDROCHLORIDE
     Indication: Infusion related reaction
     Route: 048
     Dates: start: 20211020
  7. GABAPENTIN [Concomitant]
     Active Substance: GABAPENTIN
     Indication: Neuralgia
     Route: 048
     Dates: start: 20210723
  8. CELECOXIB [Concomitant]
     Active Substance: CELECOXIB
     Indication: Neuralgia
     Route: 048
     Dates: start: 20210720
  9. ACETAMINOPHEN [Concomitant]
     Active Substance: ACETAMINOPHEN
     Indication: Headache
     Route: 048
     Dates: start: 20210825
  10. SURBEX [ASCORBIC ACID;CALCIUM PANTOTHENATE;CYANOCOBALAMIN;NICOTINAMIDE [Concomitant]
     Indication: Supplementation therapy
     Route: 048
     Dates: start: 20211018, end: 20211027
  11. AZITHROMYCIN [Concomitant]
     Active Substance: AZITHROMYCIN
     Indication: Dysuria
     Route: 048
     Dates: start: 20211018, end: 20211024
  12. AZITHROMYCIN [Concomitant]
     Active Substance: AZITHROMYCIN
     Indication: Pollakiuria
  13. PHENAZOPYRIDINE HYDROCHLORIDE [Concomitant]
     Active Substance: PHENAZOPYRIDINE HYDROCHLORIDE
     Indication: Dysuria
     Route: 048
     Dates: start: 20211018, end: 20211024
  14. PHENAZOPYRIDINE HYDROCHLORIDE [Concomitant]
     Active Substance: PHENAZOPYRIDINE HYDROCHLORIDE
     Indication: Pollakiuria

REACTIONS (1)
  - Thyroid function test abnormal [Not Recovered/Not Resolved]

NARRATIVE: CASE EVENT DATE: 20210920
